FAERS Safety Report 23626795 (Version 1)
Quarter: 2024Q1

REPORT INFORMATION
  Report Type: Spontaneous
  Country: AU (occurrence: AU)
  Receive Date: 20240313
  Receipt Date: 20240313
  Transmission Date: 20240409
  Serious: Yes (Other)
  Sender: FDA-Public Use
  Company Number: AU-PFIZER INC-PV202200050817

PATIENT
  Age: 41 Year
  Sex: Male
  Weight: 96.1 kg

DRUGS (8)
  1. CLOZAPINE [Suspect]
     Active Substance: CLOZAPINE
     Indication: Schizophrenia
     Dosage: UNK
     Dates: start: 20000317
  2. CLOZAPINE [Suspect]
     Active Substance: CLOZAPINE
     Dosage: UNK
     Dates: start: 20050609
  3. CLOZAPINE [Suspect]
     Active Substance: CLOZAPINE
     Dosage: 500 MG
     Dates: end: 20220825
  4. CLOZAPINE [Suspect]
     Active Substance: CLOZAPINE
     Indication: Schizophrenia
     Dosage: 10ML NOCTE
     Route: 065
  5. PANTOPRAZOLE [Suspect]
     Active Substance: PANTOPRAZOLE
     Dosage: FROM GP, 40 MG QD NOCTE
  6. IRON [Suspect]
     Active Substance: IRON
     Dosage: UNK
     Route: 065
  7. NIZATIDINE [Suspect]
     Active Substance: NIZATIDINE
     Dosage: UNK
     Route: 065
  8. CALCIUM CARBONATE\SODIUM ALGINATE\SODIUM BICARBONATE [Suspect]
     Active Substance: CALCIUM CARBONATE\SODIUM ALGINATE\SODIUM BICARBONATE
     Dosage: PRN
     Route: 065

REACTIONS (7)
  - Tricuspid valve incompetence [Unknown]
  - Lipids increased [Unknown]
  - Sinus tachycardia [Unknown]
  - Left ventricular dysfunction [Unknown]
  - Aortic dilatation [Unknown]
  - QRS axis abnormal [Unknown]
  - Vitamin B12 increased [Unknown]

NARRATIVE: CASE EVENT DATE: 20210315
